FAERS Safety Report 4867135-0 (Version None)
Quarter: 2005Q4

REPORT INFORMATION
  Report Type: 
  Country: None (occurrence: None)
  Receive Date: 20051222
  Receipt Date: 20051214
  Transmission Date: 20060501
  Serious: Yes (Hospitalization)
  Sender: FDA-Public Use
  Company Number: 236263K05USA

PATIENT
  Age: 34 Year
  Sex: Female

DRUGS (1)
  1. REBIF [Suspect]
     Indication: MULTIPLE SCLEROSIS
     Dosage: 44 MCG, 3 IN 1 WEEKS, SUBCUTANEOUS
     Route: 058
     Dates: start: 20051006

REACTIONS (5)
  - BREAST MASS [None]
  - DEHYDRATION [None]
  - INJECTION SITE ABSCESS STERILE [None]
  - MALAISE [None]
  - URINE COLOUR ABNORMAL [None]
